FAERS Safety Report 19130920 (Version 1)
Quarter: 2021Q2

REPORT INFORMATION
  Report Type: Spontaneous
  Country: PE (occurrence: PE)
  Receive Date: 20210413
  Receipt Date: 20210413
  Transmission Date: 20210717
  Serious: Yes (Other)
  Sender: FDA-Public Use
  Company Number: PE-SA-2021SA114263

PATIENT
  Age: 38 Year
  Sex: Female

DRUGS (1)
  1. LANTUS [Suspect]
     Active Substance: INSULIN GLARGINE
     Indication: DIABETES MELLITUS
     Dosage: UNK
     Route: 065
     Dates: start: 202102

REACTIONS (5)
  - Dizziness [Unknown]
  - Palpitations [Unknown]
  - Exposure during pregnancy [Unknown]
  - Diabetes mellitus inadequate control [Unknown]
  - Placenta praevia [Unknown]
